FAERS Safety Report 7220380-1 (Version None)
Quarter: 2011Q1

REPORT INFORMATION
  Report Type: 
  Country: None (occurrence: None)
  Receive Date: 20110111
  Receipt Date: 20110104
  Transmission Date: 20110831
  Serious: Yes (Hospitalization)
  Sender: FDA-Public Use
  Company Number: US-BRACCO-005780

PATIENT
  Age: 58 Year
  Sex: Female

DRUGS (9)
  1. VALIUM [Concomitant]
  2. ASPIRIN [Concomitant]
  3. VITAMIN TAB [Concomitant]
  4. ZYBAN [Concomitant]
  5. ATENOLOL [Concomitant]
  6. PROHANCE [Suspect]
     Indication: MULTIPLE SCLEROSIS
     Route: 042
     Dates: start: 20101230, end: 20101230
  7. LEVOTHYROXINE SODIUM [Concomitant]
  8. PROHANCE [Suspect]
     Indication: NUCLEAR MAGNETIC RESONANCE IMAGING
     Route: 042
     Dates: start: 20101230, end: 20101230
  9. DRISDOL [Concomitant]

REACTIONS (8)
  - NAUSEA [None]
  - COLD SWEAT [None]
  - THIRST [None]
  - PALLOR [None]
  - BLOOD PRESSURE IMMEASURABLE [None]
  - HYPERHIDROSIS [None]
  - OXYGEN SATURATION ABNORMAL [None]
  - FEELING HOT [None]
